FAERS Safety Report 7942537-4 (Version None)
Quarter: 2011Q4

REPORT INFORMATION
  Report Type: 
  Country: None (occurrence: None)
  Receive Date: 20111128
  Receipt Date: 20111110
  Transmission Date: 20120403
  Serious: Yes (Hospitalization)
  Sender: FDA-Public Use
  Company Number: CZ-GLAXOSMITHKLINE-B0763335A

PATIENT
  Age: 4 Year
  Sex: Male

DRUGS (6)
  1. GENTAMICIN [Concomitant]
  2. ZINACEF [Suspect]
     Route: 042
  3. CORTICOID [Concomitant]
     Route: 042
  4. METRONIDAZOLE [Concomitant]
  5. OXYGEN [Concomitant]
  6. PENICILLIN [Concomitant]

REACTIONS (7)
  - COLITIS [None]
  - MUCOUS STOOLS [None]
  - HAEMATEMESIS [None]
  - DIARRHOEA [None]
  - PYREXIA [None]
  - PSEUDOMEMBRANOUS COLITIS [None]
  - HAEMATOCHEZIA [None]
